FAERS Safety Report 25506763 (Version 1)
Quarter: 2025Q3

REPORT INFORMATION
  Report Type: Spontaneous
  Country: US (occurrence: US)
  Receive Date: 20250702
  Receipt Date: 20250702
  Transmission Date: 20251020
  Serious: No
  Sender: RADIUS PHARM
  Company Number: US-RADIUS HEALTH INC.-2024US004060

PATIENT
  Sex: Female

DRUGS (2)
  1. TYMLOS [Suspect]
     Active Substance: ABALOPARATIDE
     Indication: Product used for unknown indication
  2. TYMLOS [Suspect]
     Active Substance: ABALOPARATIDE

REACTIONS (12)
  - Vertigo [Recovered/Resolved]
  - Muscle spasms [Recovered/Resolved]
  - Sensory disturbance [Recovered/Resolved]
  - Intentional product misuse [Unknown]
  - Muscular weakness [Recovered/Resolved]
  - Heart rate increased [Recovered/Resolved]
  - Tension headache [Recovered/Resolved]
  - Back pain [Recovered/Resolved]
  - Balance disorder [Unknown]
  - Pain in extremity [Unknown]
  - Therapeutic response unexpected [Unknown]
  - Dizziness [Unknown]

NARRATIVE: CASE EVENT DATE: 20240101
